FAERS Safety Report 7038519-X (Version None)
Quarter: 2010Q4

REPORT INFORMATION
  Report Type: 
  Country: None (occurrence: None)
  Receive Date: 20101011
  Receipt Date: 20100622
  Transmission Date: 20110411
  Serious: Yes (Other)
  Sender: FDA-Public Use
  Company Number: US-PFIZER INC-2010027439

PATIENT
  Sex: Female
  Weight: 56.236 kg

DRUGS (4)
  1. NEURONTIN [Suspect]
     Indication: ANXIETY DISORDER
     Dosage: 100 MG, 3X/DAY
     Route: 048
     Dates: start: 20100101, end: 20100101
  2. NEURONTIN [Suspect]
     Dosage: 600 MG, UNK
     Route: 048
     Dates: start: 20100101
  3. NEURONTIN [Suspect]
     Dosage: 600 MG, 3X/DAY
     Route: 048
     Dates: start: 20100225
  4. WELLBUTRIN [Concomitant]
     Dosage: UNK

REACTIONS (2)
  - EYE OEDEMA [None]
  - FLUID RETENTION [None]
